FAERS Safety Report 5489668-9 (Version None)
Quarter: 2007Q4

REPORT INFORMATION
  Report Type: 
  Country: None (occurrence: None)
  Receive Date: 20071018
  Receipt Date: 20071010
  Transmission Date: 20080405
  Serious: Yes (Other)
  Sender: FDA-Public Use
  Company Number: US-ROCHE-524465

PATIENT
  Age: 20 Year
  Sex: Female

DRUGS (2)
  1. ACCUTANE [Suspect]
     Indication: DRUG USE FOR UNKNOWN INDICATION
     Dosage: THE PATIENT WAS PRESCRIBED ACCUTANE ON ON 04 SEPTEMBER 2007.
     Route: 065
  2. SOTRET [Suspect]
     Dosage: THE PATIENT WAS ON SOTRET FOR SEVERAL MONTHS
     Route: 065

REACTIONS (1)
  - SUICIDAL IDEATION [None]
